FAERS Safety Report 9679287 (Version 1)
Quarter: 2013Q4

REPORT INFORMATION
  Report Type: Spontaneous
  Country: US (occurrence: US)
  Receive Date: 20131109
  Receipt Date: 20131109
  Transmission Date: 20140711
  Serious: No
  Sender: FDA-Public Use
  Company Number: US-B.I. PHARMACEUTICALS,INC./RIDGEFIELD-2013-BI-34412BP

PATIENT
  Age: 59 Year
  Sex: Female
  Weight: 54 kg

DRUGS (10)
  1. SPIRIVA [Suspect]
     Indication: ASTHMA
     Dosage: 18 MCG
     Route: 055
     Dates: start: 2004, end: 20131023
  2. ALBUTEROL [Concomitant]
     Indication: ASTHMA
     Dosage: PRN
     Route: 055
     Dates: start: 1970
  3. MOTRIN [Concomitant]
     Indication: ARTHRALGIA
     Dosage: PRN
     Route: 048
     Dates: start: 2001
  4. ADVAIR [Concomitant]
     Indication: ASTHMA
     Dosage: 2 PUF
     Route: 055
     Dates: start: 2001, end: 20131023
  5. OMEPRAZOLE [Concomitant]
     Indication: DYSPEPSIA
     Dosage: 40 MG
     Route: 048
     Dates: start: 2006
  6. FEXOFENIDINE [Concomitant]
     Indication: HYPERSENSITIVITY
     Dosage: 180 MG
     Route: 048
     Dates: start: 1998
  7. AMLODIPINE [Concomitant]
     Indication: OESOPHAGEAL SPASM
     Dosage: 7.5 MG
     Route: 048
     Dates: start: 2009
  8. MONTELUKAST [Concomitant]
     Indication: HYPERSENSITIVITY
     Dosage: 10 MG
     Route: 048
     Dates: start: 2001
  9. BENADRYL [Concomitant]
     Indication: HYPERSENSITIVITY
     Dosage: PRN
     Route: 048
     Dates: start: 1990
  10. ZANTAC [Concomitant]
     Indication: DYSPEPSIA
     Dosage: PRN
     Route: 048
     Dates: start: 2001

REACTIONS (2)
  - Dyspnoea [Not Recovered/Not Resolved]
  - Off label use [Recovered/Resolved]
